FAERS Safety Report 4432647-0 (Version None)
Quarter: 2004Q3

REPORT INFORMATION
  Report Type: 
  Country: None (occurrence: None)
  Receive Date: 20040823
  Receipt Date: 20040809
  Transmission Date: 20050211
  Serious: Yes (Life-Threatening, Other)
  Sender: FDA-Public Use
  Company Number: 2004054607

PATIENT
  Age: 58 Year
  Sex: Female

DRUGS (19)
  1. NEURONTIN [Suspect]
     Indication: ILL-DEFINED DISORDER
     Dosage: (300 MG), ORAL
     Route: 048
  2. ATENOLOL [Concomitant]
  3. METFORMIN (METFOMRIN) [Concomitant]
  4. POTASSIUM CHLORIDE [Concomitant]
  5. NIFEDIPINE [Concomitant]
  6. INITARD (INSULIN, INSULIN INJECTION, ISOPHANE) [Concomitant]
  7. CALCITRIOL [Concomitant]
  8. ALL OTEHR THERAPEUTIC RPODUCTS (ALL OTHER THERAPEUTIC PRODUCTS) [Concomitant]
  9. ROFECOXIB [Concomitant]
  10. TOCOPHEROL CONCENTRATE CAP [Concomitant]
  11. SIMVASTATIN [Concomitant]
  12. PROBENECID [Concomitant]
  13. LORATADINE [Concomitant]
  14. PERINDOPRIL (PERINDOPRIL) [Concomitant]
  15. FAMOTIDINE [Concomitant]
  16. GLICLAZIDE (GLICLAZIDE) [Concomitant]
  17. PROCHLORPERAZINE [Concomitant]
  18. ACETAMINOPHEN [Concomitant]
  19. CALCIUM (CALCIUM) [Concomitant]

REACTIONS (2)
  - STEVENS-JOHNSON SYNDROME [None]
  - TOXIC EPIDERMAL NECROLYSIS [None]
